FAERS Safety Report 17292517 (Version 1)
Quarter: 2020Q1

REPORT INFORMATION
  Report Type: Report from Study
  Country: CA (occurrence: CA)
  Receive Date: 20200121
  Receipt Date: 20200121
  Transmission Date: 20200409
  Serious: Yes (Other)
  Sender: FDA-Public Use
  Company Number: CA-BAYER-2019-209414

PATIENT
  Age: 72 Year
  Sex: Male

DRUGS (3)
  1. STIVARGA [Suspect]
     Active Substance: REGORAFENIB
     Indication: HEPATOCELLULAR INJURY
     Dosage: 160 MG, QD
     Route: 048
     Dates: start: 20191128, end: 20191128
  2. STIVARGA [Suspect]
     Active Substance: REGORAFENIB
     Indication: HEPATOCELLULAR INJURY
     Dosage: 80 MG, QD
     Route: 048
  3. STIVARGA [Suspect]
     Active Substance: REGORAFENIB
     Indication: HEPATOCELLULAR INJURY
     Dosage: UNK
     Dates: start: 20191120, end: 201911

REACTIONS (5)
  - Blood pressure increased [Unknown]
  - Off label use [None]
  - Product use in unapproved indication [None]
  - Diarrhoea [None]
  - Dysphonia [Not Recovered/Not Resolved]

NARRATIVE: CASE EVENT DATE: 20191128
